FAERS Safety Report 10190370 (Version 3)
Quarter: 2014Q4

REPORT INFORMATION
  Report Type: Spontaneous
  Country: US (occurrence: US)
  Receive Date: 20140522
  Receipt Date: 20141030
  Transmission Date: 20150528
  Serious: Yes (Death, Hospitalization, Other)
  Sender: FDA-Public Use
  Company Number: US-GILEAD-2014-0103092

PATIENT
  Age: 77 Year
  Sex: Female
  Weight: 69.8 kg

DRUGS (22)
  1. SODIUM BICARBONATE. [Concomitant]
     Active Substance: SODIUM BICARBONATE
  2. LETAIRIS [Suspect]
     Active Substance: AMBRISENTAN
     Indication: PULMONARY ARTERIAL HYPERTENSION
     Dosage: 10 MG, QD
     Route: 065
     Dates: start: 20131224
  3. LISINOPRIL. [Concomitant]
     Active Substance: LISINOPRIL
  4. METOCLOPRAMIDE. [Concomitant]
     Active Substance: METOCLOPRAMIDE
  5. FORMOTEROL FUMARATE W/MOMETASONE FUROATE [Concomitant]
  6. AMLODIPINE [Concomitant]
     Active Substance: AMLODIPINE BESYLATE
  7. REVATIO [Concomitant]
     Active Substance: SILDENAFIL CITRATE
  8. RANITIDINE [Concomitant]
     Active Substance: RANITIDINE\RANITIDINE HYDROCHLORIDE
  9. SILDENAFIL. [Concomitant]
     Active Substance: SILDENAFIL
  10. CLIDINIUM C [Concomitant]
  11. LEVOTHYROXINE [Concomitant]
     Active Substance: LEVOTHYROXINE
  12. MULTIVITAMIN                       /07504101/ [Concomitant]
     Active Substance: VITAMINS
  13. ZOLPIDEM [Concomitant]
     Active Substance: ZOLPIDEM\ZOLPIDEM TARTRATE
  14. ASPIRIN                            /00002701/ [Concomitant]
     Active Substance: ASPIRIN
  15. ROPINIROLE. [Concomitant]
     Active Substance: ROPINIROLE
  16. FOLIC ACID. [Concomitant]
     Active Substance: FOLIC ACID
  17. GABAPENTIN. [Concomitant]
     Active Substance: GABAPENTIN
  18. HYDROCODONE [Concomitant]
     Active Substance: HYDROCODONE
  19. HYDRALAZINE [Concomitant]
     Active Substance: HYDRALAZINE HYDROCHLORIDE
  20. LANTHANUM CARBONATE. [Concomitant]
     Active Substance: LANTHANUM CARBONATE
  21. SERTRALINE [Concomitant]
     Active Substance: SERTRALINE HYDROCHLORIDE
  22. ALLOPURINOL. [Concomitant]
     Active Substance: ALLOPURINOL

REACTIONS (2)
  - Cardiac failure congestive [Fatal]
  - Chest pain [Unknown]
